FAERS Safety Report 8513758-7 (Version None)
Quarter: 2012Q3

REPORT INFORMATION
  Report Type: 
  Country: None (occurrence: None)
  Receive Date: 20120717
  Receipt Date: 20120703
  Transmission Date: 20120928
  Serious: Yes (Death, Other)
  Sender: FDA-Public Use
  Company Number: BR-RANBAXY-2012R5-57757

PATIENT
  Sex: Female

DRUGS (1)
  1. CEFUROXIME AXETIL [Suspect]
     Indication: NASOPHARYNGITIS
     Dosage: 500 MG, BID
     Route: 048
     Dates: start: 20120702

REACTIONS (3)
  - PAIN [None]
  - RESPIRATORY TRACT HAEMORRHAGE [None]
  - BACK PAIN [None]
